FAERS Safety Report 4586474-4 (Version None)
Quarter: 2005Q1

REPORT INFORMATION
  Report Type: 
  Country: None (occurrence: None)
  Receive Date: 20050214
  Receipt Date: 20050131
  Transmission Date: 20050727
  Serious: Yes (Hospitalization, Other)
  Sender: FDA-Public Use
  Company Number: HQWYE451610JAN05

PATIENT
  Age: 66 Year
  Sex: Male
  Weight: 86.8 kg

DRUGS (23)
  1. RAPAMUNE [Suspect]
     Indication: PROPHYLAXIS AGAINST TRANSPLANT REJECTION
     Dosage: SEE IMAGE
     Route: 048
     Dates: start: 20040128, end: 20041123
  2. RAPAMUNE [Suspect]
     Indication: PROPHYLAXIS AGAINST TRANSPLANT REJECTION
     Dosage: SEE IMAGE
     Route: 048
     Dates: start: 20041124, end: 20050103
  3. RAPAMUNE [Suspect]
     Indication: PROPHYLAXIS AGAINST TRANSPLANT REJECTION
     Dosage: SEE IMAGE
     Route: 048
     Dates: start: 20050105, end: 20050105
  4. RAPAMUNE [Suspect]
     Indication: PROPHYLAXIS AGAINST TRANSPLANT REJECTION
     Dosage: SEE IMAGE
     Route: 048
     Dates: start: 20050106, end: 20050109
  5. RAPAMUNE [Suspect]
     Indication: PROPHYLAXIS AGAINST TRANSPLANT REJECTION
     Dosage: SEE IMAGE
     Route: 048
     Dates: start: 20050110, end: 20050114
  6. RAPAMUNE [Suspect]
     Indication: PROPHYLAXIS AGAINST TRANSPLANT REJECTION
     Dosage: SEE IMAGE
     Route: 048
     Dates: start: 20050115, end: 20050118
  7. PROGRAF [Concomitant]
  8. ACYCLOVIR [Concomitant]
  9. ARANESP [Concomitant]
  10. AVAPRO [Concomitant]
  11. CARDIZEM CD [Concomitant]
  12. CLONIDINE [Concomitant]
  13. COUMADIN [Concomitant]
  14. DARVOCET-N 50 [Concomitant]
  15. FLOMAX [Concomitant]
  16. GLUCOTROL XL (CLIPIXIDE) [Concomitant]
  17. LASIX [Concomitant]
  18. LIPITOR [Concomitant]
  19. MAGNESIUM OXIDE (MAGNESIUM OXIDE) [Concomitant]
  20. OS-CAL + D (CALCIUM CARBONATE/COLECALCIFEROL) [Concomitant]
  21. PREDNISONE [Concomitant]
  22. PROTONIX [Concomitant]
  23. SODIUM BICARBONATE IN PLASTIC CONTAINER [Concomitant]

REACTIONS (17)
  - BLOOD ALBUMIN DECREASED [None]
  - BLOOD GLUCOSE INCREASED [None]
  - BLOOD POTASSIUM INCREASED [None]
  - BLOOD PRESSURE INCREASED [None]
  - BODY TEMPERATURE INCREASED [None]
  - DRUG INEFFECTIVE [None]
  - GRAFT LOSS [None]
  - HAEMATOCRIT DECREASED [None]
  - HAEMODIALYSIS [None]
  - HAEMOGLOBIN DECREASED [None]
  - HEPATITIS B ANTIBODY POSITIVE [None]
  - LYMPHOCYTE COUNT DECREASED [None]
  - PROTEIN TOTAL DECREASED [None]
  - RED BLOOD CELL COUNT DECREASED [None]
  - RED CELL DISTRIBUTION WIDTH INCREASED [None]
  - RENAL FAILURE [None]
  - WEIGHT DECREASED [None]
